FAERS Safety Report 9965470 (Version 1)
Quarter: 2014Q1

REPORT INFORMATION
  Report Type: Report from Study
  Country: US (occurrence: US)
  Receive Date: 20140305
  Receipt Date: 20140305
  Transmission Date: 20141002
  Serious: No
  Sender: FDA-Public Use
  Company Number: US-ABBVIE-13P-163-1126528-00

PATIENT
  Age: 54 Year
  Sex: Female

DRUGS (20)
  1. HUMIRA [Suspect]
     Indication: PSORIASIS
     Dates: start: 20130213
  2. EFFEXOR [Concomitant]
     Indication: DEPRESSION
     Dates: start: 201304
  3. PREDNISONE [Concomitant]
     Indication: PRODUCT USED FOR UNKNOWN INDICATION
     Dosage: 3 TABS FIRST 3 DAYS
  4. PREDNISONE [Concomitant]
     Dosage: 2 TABLETS FOR 3 DAYS
  5. PREDNISONE [Concomitant]
     Dosage: THEN 1 TABLET FOR 4 DAYS
  6. SYNTHROID [Concomitant]
     Indication: HYPOTHYROIDISM
     Dosage: \
  7. OMEPRAZOLE [Concomitant]
     Indication: GASTROOESOPHAGEAL REFLUX DISEASE
  8. RANITIDINE [Concomitant]
     Indication: GASTROOESOPHAGEAL REFLUX DISEASE
     Dosage: AT BEDTIME
  9. ESTRADIOL [Concomitant]
     Indication: HORMONE REPLACEMENT THERAPY
  10. MONTELUKAST [Concomitant]
     Indication: PRODUCT USED FOR UNKNOWN INDICATION
  11. ADVAIR [Concomitant]
     Indication: ASTHMA
  12. SPIRIVA [Concomitant]
     Indication: ASTHMA
  13. PROPRANOLOL [Concomitant]
     Indication: HYPERTENSION
     Dosage: 40MG DAILY SINCE APR 2013
     Dates: end: 201304
  14. PROPRANOLOL [Concomitant]
     Dosage: PT CHANGED DOSE ON OWN
     Dates: start: 201304
  15. ENALAPRIL [Concomitant]
     Indication: HYPERTENSION
  16. CELEBREX [Concomitant]
     Indication: ARTHRALGIA
  17. GABAPENTIN [Concomitant]
     Indication: NEURALGIA
  18. AMBIEN [Concomitant]
     Indication: INSOMNIA
     Dosage: AT BEDTIME
  19. SIMVASTATIN [Concomitant]
     Indication: BLOOD CHOLESTEROL INCREASED
  20. CYCLOBENZAPRINE [Concomitant]
     Indication: MUSCLE SPASMS

REACTIONS (4)
  - Increased upper airway secretion [Not Recovered/Not Resolved]
  - Wheezing [Not Recovered/Not Resolved]
  - Depression [Not Recovered/Not Resolved]
  - Cough [Not Recovered/Not Resolved]
